FAERS Safety Report 5526713-6 (Version None)
Quarter: 2007Q4

REPORT INFORMATION
  Report Type: 
  Country: None (occurrence: None)
  Receive Date: 20071123
  Receipt Date: 20070214
  Transmission Date: 20080405
  Serious: Yes (Hospitalization)
  Sender: FDA-Public Use
  Company Number: 2007MP000079

PATIENT
  Age: 58 Year
  Sex: Female
  Weight: 83 kg

DRUGS (14)
  1. GLIADEL [Suspect]
     Indication: GLIOBLASTOMA MULTIFORME
     Dosage: 61.6 MG;X1;ICER
     Dates: start: 20061220
  2. 06-BENZYLGUANINE (06BG) [Suspect]
     Indication: GLIOBLASTOMA MULTIFORME
     Dosage: 30 MG/M**2;QD;IV
     Route: 042
     Dates: start: 20061220, end: 20061224
  3. PEPCID [Concomitant]
  4. DECADRON [Concomitant]
  5. KEPPRA [Concomitant]
  6. VITAMIN D3 [Concomitant]
  7. SINEMET [Concomitant]
  8. TUMS [Concomitant]
  9. VITAMIN CAP [Concomitant]
  10. ZOLOFT [Concomitant]
  11. TRAZODONE HCL [Concomitant]
  12. SENOKOT [Concomitant]
  13. DULCOLAX [Concomitant]
  14. ATIVAN [Concomitant]

REACTIONS (2)
  - BRAIN OEDEMA [None]
  - HEMIPARESIS [None]
